FAERS Safety Report 11236539 (Version 2)
Quarter: 2015Q3

REPORT INFORMATION
  Report Type: Report from Study
  Country: BR (occurrence: BR)
  Receive Date: 20150702
  Receipt Date: 20150703
  Transmission Date: 20151125
  Serious: Yes (Other)
  Sender: FDA-Public Use
  Company Number: PHHY2015BR075605

PATIENT
  Sex: Female

DRUGS (7)
  1. CAPTOPRIL. [Suspect]
     Active Substance: CAPTOPRIL
     Indication: HYPERTENSION
     Dosage: 125 MG, (50 MG IN MORNING, 75 MG IN NOON)125 MG, (50 MG IN MORNING, 75 MG IN NOON)
     Route: 065
  2. PARACETAMOL 1A PHARMA [Suspect]
     Active Substance: ACETAMINOPHEN
     Indication: ARTHRALGIA
     Dosage: 1 FILM COLD TABLET AND A HALF
     Route: 065
  3. DORFLEX [Suspect]
     Active Substance: CAFFEINE\DIPYRONE\ORPHENADRINE
     Indication: ARTHRALGIA
     Dosage: 1 DF, QD
     Route: 065
  4. RITALIN [Suspect]
     Active Substance: METHYLPHENIDATE HYDROCHLORIDE
     Indication: ATTENTION DEFICIT/HYPERACTIVITY DISORDER
     Dosage: 3 DF, QD (AT 16 HOURS)
     Route: 065
  5. ATENOLOL. [Suspect]
     Active Substance: ATENOLOL
     Indication: HYPERTENSION
     Dosage: 1 DF, BID (IN THE MORNING AND AT AFTERNOON)
     Route: 065
  6. MELOXICAM. [Suspect]
     Active Substance: MELOXICAM
     Indication: PAIN
     Dosage: 1 DF, DAILY (USED FOR 4 DAYS AND OTHER 4 DAYS SHE DID NOT USED IT)
     Route: 065
  7. OMEPRAZOLE. [Suspect]
     Active Substance: OMEPRAZOLE
     Indication: GASTRITIS
     Dosage: 1 DF, BID (IN THE MORNING AND AT 18.00 H)
     Route: 065

REACTIONS (2)
  - Memory impairment [Recovering/Resolving]
  - Weight decreased [Recovering/Resolving]
